FAERS Safety Report 17345974 (Version 1)
Quarter: 2020Q1

REPORT INFORMATION
  Report Type: Spontaneous
  Country: US (occurrence: US)
  Receive Date: 20200129
  Receipt Date: 20200129
  Transmission Date: 20200409
  Serious: No
  Sender: FDA-Public Use
  Company Number: US-009507513-2001USA009676

PATIENT
  Age: 62 Year
  Sex: Female

DRUGS (3)
  1. JANUVIA [Suspect]
     Active Substance: SITAGLIPTIN PHOSPHATE
     Dosage: ONCE A DAY
     Route: 048
  2. METFORMIN [Concomitant]
     Active Substance: METFORMIN HYDROCHLORIDE
  3. STEGLUJAN [Suspect]
     Active Substance: ERTUGLIFLOZIN PIDOLATE\SITAGLIPTIN PHOSPHATE
     Indication: DIABETES MELLITUS
     Dosage: ONCE A DAY
     Route: 048

REACTIONS (2)
  - Sleep disorder [Not Recovered/Not Resolved]
  - Insomnia [Not Recovered/Not Resolved]

NARRATIVE: CASE EVENT DATE: 20200115
